FAERS Safety Report 15605693 (Version 1)
Quarter: 2018Q4

REPORT INFORMATION
  Report Type: Spontaneous
  Country: SE (occurrence: SE)
  Receive Date: 20181112
  Receipt Date: 20181112
  Transmission Date: 20190205
  Serious: Yes (Other)
  Sender: FDA-Public Use
  Company Number: SE-ACCORD-091777

PATIENT
  Age: 50 Year
  Sex: Female

DRUGS (3)
  1. ADALIMUMAB [Suspect]
     Active Substance: ADALIMUMAB
     Indication: COLITIS ULCERATIVE
     Dates: start: 20121011
  2. METHOTREXATE. [Suspect]
     Active Substance: METHOTREXATE
     Indication: PRODUCT USED FOR UNKNOWN INDICATION
     Dates: start: 20101025
  3. ADALIMUMAB [Suspect]
     Active Substance: ADALIMUMAB
     Indication: ARTHROPATHY
     Dates: start: 20121011

REACTIONS (1)
  - Meningitis viral [Recovered/Resolved]

NARRATIVE: CASE EVENT DATE: 20170817
